FAERS Safety Report 10416874 (Version 3)
Quarter: 2014Q3

REPORT INFORMATION
  Report Type: Report from Study
  Country: US (occurrence: US)
  Receive Date: 20140828
  Receipt Date: 20140916
  Transmission Date: 20150326
  Serious: Yes (Other)
  Sender: FDA-Public Use
  Company Number: PHEH2014US012962

PATIENT
  Age: 55 Year
  Sex: Male
  Weight: 80 kg

DRUGS (4)
  1. ZYPREXA [Concomitant]
     Active Substance: OLANZAPINE
     Dosage: 15 MG, (5 MG AM + 10 MG HS),DAILY
     Route: 048
     Dates: start: 20000523
  2. CLOZARIL [Suspect]
     Active Substance: CLOZAPINE
     Indication: SCHIZOPHRENIA
     Dosage: 600 MG, (200MG AM + 400 MG HS), DAILY
     Route: 048
     Dates: start: 20000523
  3. VALPROIC ACID. [Concomitant]
     Active Substance: VALPROIC ACID
     Dosage: UNK UKN, UNK
  4. DEPAKOTE [Concomitant]
     Active Substance: DIVALPROEX SODIUM
     Dosage: 1250 MG, (500 MG AM + 750 MG HS), UKN
     Route: 048
     Dates: start: 20000523

REACTIONS (5)
  - Multiple sclerosis [Unknown]
  - Gait disturbance [Unknown]
  - Muscular weakness [Unknown]
  - White blood cell count increased [Not Recovered/Not Resolved]
  - Neutrophil count increased [Not Recovered/Not Resolved]

NARRATIVE: CASE EVENT DATE: 20140423
